FAERS Safety Report 6933238-X (Version None)
Quarter: 2010Q3

REPORT INFORMATION
  Report Type: 
  Country: None (occurrence: None)
  Receive Date: 20100820
  Receipt Date: 20100809
  Transmission Date: 20110219
  Serious: Yes (Life-Threatening, Hospitalization)
  Sender: FDA-Public Use
  Company Number: US-JNJFOC-20100806278

PATIENT
  Sex: Male
  Weight: 102.51 kg

DRUGS (26)
  1. INTELENCE [Suspect]
     Indication: HIV INFECTION
     Route: 048
  2. PREZISTA [Concomitant]
     Indication: HIV INFECTION
     Route: 048
  3. PREZISTA [Concomitant]
     Route: 048
  4. PREZISTA [Concomitant]
     Route: 048
  5. CELEXA [Concomitant]
     Indication: DEPRESSION
     Route: 065
  6. LOTENSIN [Concomitant]
     Indication: HYPERTENSION
     Route: 065
  7. SODIUM BICARBONATE [Concomitant]
     Route: 065
  8. EPZICOM [Concomitant]
     Indication: HIV INFECTION
  9. NORVIR [Concomitant]
     Route: 065
  10. NORVIR [Concomitant]
     Route: 065
  11. NORVIR [Concomitant]
     Route: 065
  12. TRICOR [Concomitant]
     Indication: HYPERLIPIDAEMIA
     Route: 065
  13. ATENOLOL [Concomitant]
     Indication: HYPERTENSION
     Route: 065
  14. PRAVASTATIN [Concomitant]
     Indication: HYPERLIPIDAEMIA
     Route: 065
  15. GABAPENTIN [Concomitant]
  16. FISH OIL [Concomitant]
     Indication: HYPERTRIGLYCERIDAEMIA
     Route: 065
  17. NIASPAN [Concomitant]
     Indication: HYPERTRIGLYCERIDAEMIA
     Route: 065
  18. DEPAKOTE [Concomitant]
     Indication: CONVULSION
  19. DEPAKOTE [Concomitant]
  20. DEPAKOTE [Concomitant]
  21. DEPAKOTE [Concomitant]
  22. LYRICA [Concomitant]
     Indication: NEUROPATHY PERIPHERAL
     Route: 065
  23. CLONAZEPAM [Concomitant]
     Indication: ANXIETY
     Route: 065
  24. DESYREL [Concomitant]
     Indication: INSOMNIA
     Route: 065
  25. NORTRIPTYLINE HYDROCHLORIDE [Concomitant]
     Indication: DEPRESSION
     Route: 065
  26. LEXAPRO [Concomitant]
     Indication: DEPRESSION

REACTIONS (13)
  - CHRONIC OBSTRUCTIVE PULMONARY DISEASE [None]
  - CONFUSIONAL STATE [None]
  - DIARRHOEA [None]
  - HYPERGLYCAEMIA [None]
  - HYPERTENSION [None]
  - HYPOPHAGIA [None]
  - HYPOVOLAEMIC SHOCK [None]
  - MYOCLONUS [None]
  - OLIGURIA [None]
  - PANCYTOPENIA [None]
  - PRODUCTIVE COUGH [None]
  - RENAL FAILURE ACUTE [None]
  - TOXIC ENCEPHALOPATHY [None]
